FAERS Safety Report 23481362 (Version 1)
Quarter: 2024Q1

REPORT INFORMATION
  Report Type: Spontaneous
  Country: US (occurrence: None)
  Receive Date: 20240202
  Receipt Date: 20240202
  Transmission Date: 20240410
  Serious: Yes (Hospitalization)
  Sender: FDA-Public Use
  Company Number: None

PATIENT
  Sex: Female

DRUGS (3)
  1. ICATIBANT [Suspect]
     Active Substance: ICATIBANT ACETATE
     Indication: Hereditary angioedema
     Dosage: 30 MG/3ML SUBCUTANEOUS??INJECT ONE 30MG SYRINGE SUBCUTANEOUSLY AT ONSET OF SWELLING AS DIRECTED.  MA
     Route: 058
     Dates: start: 20231227
  2. CODEINE SULF [Concomitant]
  3. HYDROCODONE [Concomitant]

REACTIONS (3)
  - Caesarean section [None]
  - Maternal exposure timing unspecified [None]
  - Hereditary angioedema [None]
